FAERS Safety Report 9097874 (Version 2)
Quarter: 2013Q1

REPORT INFORMATION
  Report Type: Spontaneous
  Country: IL (occurrence: IL)
  Receive Date: 20130212
  Receipt Date: 20130225
  Transmission Date: 20140127
  Serious: Yes (Other)
  Sender: FDA-Public Use
  Company Number: IL-BRISTOL-MYERS SQUIBB COMPANY-17365941

PATIENT
  Age: 59 Year
  Sex: Male

DRUGS (6)
  1. METFORMIN HCL [Suspect]
     Indication: TYPE 2 DIABETES MELLITUS
     Dosage: INTER ON 11JUL11 AND RESTAT ON 15JUL11
     Route: 048
     Dates: start: 20091105
  2. ETORICOXIB [Suspect]
     Indication: MUSCULOSKELETAL PAIN
     Route: 048
     Dates: start: 20110708, end: 20110710
  3. ROSUVASTATIN [Concomitant]
     Route: 048
     Dates: start: 20090908
  4. RAMIPRIL [Concomitant]
     Route: 048
     Dates: start: 1996
  5. ACETYLSALICYLIC ACID [Concomitant]
     Route: 048
     Dates: start: 1996
  6. TRAMADOL HCL [Concomitant]
     Route: 048
     Dates: start: 20110708, end: 20110710

REACTIONS (1)
  - Renal failure acute [Recovered/Resolved]
